FAERS Safety Report 20734441 (Version 2)
Quarter: 2022Q2

REPORT INFORMATION
  Report Type: Spontaneous
  Country: US (occurrence: US)
  Receive Date: 20220421
  Receipt Date: 20220424
  Transmission Date: 20220720
  Serious: Yes (Other)
  Sender: FDA-Public Use
  Company Number: US-SA-SAC20220420000016

PATIENT
  Age: 36 Year
  Sex: Male

DRUGS (1)
  1. ZANTAC [Suspect]
     Active Substance: RANITIDINE HYDROCHLORIDE
     Indication: Gastrooesophageal reflux disease
     Dosage: UNK, QD
     Dates: start: 199503, end: 200402

REACTIONS (5)
  - Gallbladder operation [Unknown]
  - Gallbladder cancer stage 0 [Unknown]
  - Cardiac disorder [Unknown]
  - Heart rate irregular [Unknown]
  - Injury [Unknown]

NARRATIVE: CASE EVENT DATE: 20000101
